FAERS Safety Report 15924460 (Version 3)
Quarter: 2022Q2

REPORT INFORMATION
  Report Type: Spontaneous
  Country: NL (occurrence: NL)
  Receive Date: 20190206
  Receipt Date: 20220425
  Transmission Date: 20220721
  Serious: Yes (Other)
  Sender: FDA-Public Use
  Company Number: NL-AUROBINDO-AUR-APL-2019-005399

PATIENT
  Sex: Male

DRUGS (21)
  1. QUETIAPINE [Interacting]
     Active Substance: QUETIAPINE
     Indication: Bipolar disorder
     Dosage: 25 MILLIGRAM, DAILY
     Route: 065
  2. QUETIAPINE [Interacting]
     Active Substance: QUETIAPINE
     Indication: Sleep disorder
  3. TRANYLCYPROMINE SULFATE [Suspect]
     Active Substance: TRANYLCYPROMINE SULFATE
     Indication: Bipolar II disorder
     Dosage: 30 MILLIGRAM, DAILY (1.5 TABLETS (30 MG) PER DAY IN THE MORNING)
     Route: 065
     Dates: start: 2017, end: 2017
  4. TRANYLCYPROMINE SULFATE [Suspect]
     Active Substance: TRANYLCYPROMINE SULFATE
     Dosage: 20 MILLIGRAM, EVERY OTHER DAY (2 TABLETS (40 MG) PER DAY IN THE MORNING)
     Route: 065
     Dates: start: 2017, end: 2017
  5. TRANYLCYPROMINE SULFATE [Suspect]
     Active Substance: TRANYLCYPROMINE SULFATE
     Dosage: 20 MILLIGRAM,3DAY (3 TABLETS (60 MG) PER DAY IN THE MORINING)
     Route: 065
     Dates: start: 2017, end: 2017
  6. TRANYLCYPROMINE SULFATE [Suspect]
     Active Substance: TRANYLCYPROMINE SULFATE
     Dosage: 20 MILLIGRAM, DAILY (1 TABLET (20 MG) PER DAY IN THE MORNING)
     Route: 065
     Dates: start: 2017, end: 2017
  7. TRANYLCYPROMINE SULFATE [Suspect]
     Active Substance: TRANYLCYPROMINE SULFATE
     Dosage: 50 MILLIGRAM, DAILY (2.5 TABLETS (50 MG) PER DAY IN THE MORNING)
     Route: 065
     Dates: start: 2017, end: 2017
  8. TRANYLCYPROMINE SULFATE [Suspect]
     Active Substance: TRANYLCYPROMINE SULFATE
     Dosage: 50 MILLIGRAM, DAILY (2.5 TABLETS (50 MG) PER DAY IN THE MORNING)
     Route: 065
     Dates: start: 2017, end: 2017
  9. TRANYLCYPROMINE SULFATE [Suspect]
     Active Substance: TRANYLCYPROMINE SULFATE
     Dosage: 10 MILLIGRAM, DAILY (HALF A TABLET (10 MG) A DAY IN THE MORNING)
     Route: 065
     Dates: start: 201707, end: 2017
  10. TRANYLCYPROMINE SULFATE [Suspect]
     Active Substance: TRANYLCYPROMINE SULFATE
     Dosage: 10 MILLIGRAM, DAILY (MORNING, AFTER SOME DAYS DISCONTINUED)
     Route: 065
     Dates: start: 201707, end: 201707
  11. TRANYLCYPROMINE SULFATE [Suspect]
     Active Substance: TRANYLCYPROMINE SULFATE
     Dosage: 20 MILLIGRAM, EVERY OTHER DAY (2 TABLETS (40 MG) PER DAY IN THE MORNING)
     Route: 065
     Dates: start: 2017, end: 201801
  12. TRANYLCYPROMINE SULFATE [Suspect]
     Active Substance: TRANYLCYPROMINE SULFATE
     Dosage: 10 MILLIGRAM, DAILY (0.5 MG TABLETS IN THE MORNING)
     Route: 065
     Dates: start: 201808, end: 201809
  13. TRANYLCYPROMINE SULFATE [Suspect]
     Active Substance: TRANYLCYPROMINE SULFATE
     Dosage: 20 MILLIGRAM, DAILY (1 TABLET PER DAY IN THE MORNING)
     Route: 065
     Dates: start: 201809, end: 201810
  14. TRANYLCYPROMINE SULFATE [Suspect]
     Active Substance: TRANYLCYPROMINE SULFATE
     Dosage: 30 MILLIGRAM, DAILY, (1.5 TABLETS A DAY IN THE MORNING)
     Route: 065
     Dates: start: 201810, end: 201811
  15. TRANYLCYPROMINE SULFATE [Suspect]
     Active Substance: TRANYLCYPROMINE SULFATE
     Dosage: 20 MILLIGRAM, EVERY OTHER DAY (2 TABLETS A DAY IN THE MORNING)
     Route: 065
     Dates: start: 201811, end: 201901
  16. TRANYLCYPROMINE SULFATE [Suspect]
     Active Substance: TRANYLCYPROMINE SULFATE
     Dosage: 50 MILLIGRAM, DAILY (2.5 TABLETS A DAY IN THE MORNING)
     Route: 065
     Dates: start: 201901
  17. DOSTINEX [Concomitant]
     Active Substance: CABERGOLINE
     Indication: Prolactin-producing pituitary tumour
     Dosage: 0.25 MILLIGRAM, 3 WEEK
     Route: 065
  18. DOSTINEX [Concomitant]
     Active Substance: CABERGOLINE
     Dosage: 0.75 MILLIGRAM, 3 WEEK
     Route: 065
  19. EUTHYROX [Concomitant]
     Active Substance: LEVOTHYROXINE SODIUM
     Indication: Hyperthyroidism
     Dosage: 112 MICROGRAM, DAILY
     Route: 065
  20. LITHIUM [Concomitant]
     Active Substance: LITHIUM
     Indication: Mood swings
     Dosage: 1000 MILLIGRAM, DAILY
     Route: 065
  21. LITHIUM [Concomitant]
     Active Substance: LITHIUM
     Indication: Bipolar disorder

REACTIONS (13)
  - Bradycardia [Recovered/Resolved]
  - Hypertensive crisis [Recovered/Resolved]
  - Chest pain [Unknown]
  - Hypertension [Not Recovered/Not Resolved]
  - Contraindicated product administered [Not Recovered/Not Resolved]
  - Dizziness [Unknown]
  - Hyperhidrosis [Not Recovered/Not Resolved]
  - Palpitations [Not Recovered/Not Resolved]
  - Agitation [Unknown]
  - Feeling hot [Not Recovered/Not Resolved]
  - Hypomania [Unknown]
  - Diet noncompliance [Unknown]
  - Labelled drug-food interaction medication error [Unknown]

NARRATIVE: CASE EVENT DATE: 20170701
